FAERS Safety Report 15724473 (Version 1)
Quarter: 2018Q4

REPORT INFORMATION
  Report Type: Spontaneous
  Country: FR (occurrence: FR)
  Receive Date: 20181214
  Receipt Date: 20181214
  Transmission Date: 20190205
  Serious: Yes (Congenital Anomaly)
  Sender: FDA-Public Use
  Company Number: FR-009507513-1812FRA003373

PATIENT
  Sex: Male

DRUGS (2)
  1. LOSARTAN POTASSIUM. [Suspect]
     Active Substance: LOSARTAN POTASSIUM
     Dosage: UNK
     Route: 064
  2. VENLAFAXINE HYDROCHLORIDE. [Concomitant]
     Active Substance: VENLAFAXINE HYDROCHLORIDE
     Dosage: UNK
     Route: 064

REACTIONS (3)
  - Pulmonary hypoplasia [Not Recovered/Not Resolved]
  - Spine malformation [Not Recovered/Not Resolved]
  - Renal aplasia [Not Recovered/Not Resolved]

NARRATIVE: CASE EVENT DATE: 20180206
